FAERS Safety Report 21369433 (Version 1)
Quarter: 2022Q3

REPORT INFORMATION
  Report Type: Other
  Country: None (occurrence: TR)
  Receive Date: 20220923
  Receipt Date: 20220923
  Transmission Date: 20221027
  Serious: No
  Sender: FDA-Public Use
  Company Number: TR-Eywa Pharma Inc.-2133100

PATIENT
  Age: 30 Year
  Sex: Female

DRUGS (2)
  1. PYRIDOSTIGMINE BROMIDE [Suspect]
     Active Substance: PYRIDOSTIGMINE BROMIDE
     Indication: Myasthenia gravis
     Route: 065
  2. PREDNISOLONE [Concomitant]
     Active Substance: PREDNISOLONE
     Route: 042

REACTIONS (2)
  - Myasthenia gravis [Recovering/Resolving]
  - Exposure during pregnancy [Recovering/Resolving]
